FAERS Safety Report 4928578-X (Version None)
Quarter: 2006Q1

REPORT INFORMATION
  Report Type: 
  Country: None (occurrence: None)
  Receive Date: 20060223
  Receipt Date: 20060131
  Transmission Date: 20060701
  Serious: No
  Sender: FDA-Public Use
  Company Number: US200602000746

PATIENT
  Age: 40 Year
  Sex: Female

DRUGS (1)
  1. CYMBALTA [Suspect]
     Indication: DEPRESSION
     Dosage: 90 MG; 120 MG, TABS, ORAL; 60 MG

REACTIONS (2)
  - DRUG EFFECT DECREASED [None]
  - HEPATIC ENZYME INCREASED [None]
